FAERS Safety Report 10485297 (Version 1)
Quarter: 2014Q3

REPORT INFORMATION
  Report Type: Spontaneous
  Country: US (occurrence: US)
  Receive Date: 20140930
  Receipt Date: 20140930
  Transmission Date: 20150326
  Serious: Yes (Death, Hospitalization)
  Sender: FDA-Public Use
  Company Number: PHHY2014US123635

PATIENT
  Age: 27 Year
  Sex: Female

DRUGS (4)
  1. TACROLIMUS. [Suspect]
     Active Substance: TACROLIMUS
     Indication: IMMUNOSUPPRESSION
     Dosage: 1 MG, BID
     Route: 048
  2. PREDNISONE. [Suspect]
     Active Substance: PREDNISONE
     Indication: IMMUNOSUPPRESSION
     Dosage: 15 MG, DAILY
  3. BUDESONIDE. [Concomitant]
     Active Substance: BUDESONIDE
     Dosage: 3 MG, TID
  4. MYCOPHENOLATE MOFETIL. [Suspect]
     Active Substance: MYCOPHENOLATE MOFETIL
     Indication: IMMUNOSUPPRESSION
     Dosage: 1 G, BID

REACTIONS (14)
  - Legionella infection [Fatal]
  - Hypoxia [Fatal]
  - Skin mass [Fatal]
  - Agitation [Unknown]
  - Erythema [Fatal]
  - Acute lymphocytic leukaemia [Fatal]
  - Adenoviral hepatitis [Unknown]
  - Pain in extremity [Fatal]
  - Respiratory distress [Unknown]
  - Pleural effusion [Fatal]
  - Pulmonary mass [Fatal]
  - Back pain [Fatal]
  - Transaminases abnormal [Unknown]
  - Rash [Fatal]
